FAERS Safety Report 16234988 (Version 1)
Quarter: 2019Q2

REPORT INFORMATION
  Report Type: Spontaneous
  Country: US (occurrence: US)
  Receive Date: 20190320
  Receipt Date: 20190320
  Transmission Date: 20190711
  Serious: Yes (Other)
  Sender: FDA-Public Use
  Company Number: None

PATIENT
  Age: 58 Year
  Sex: Male
  Weight: 103.42 kg

DRUGS (2)
  1. SOMADERM GEL (HOMEOPATHICS) [Suspect]
     Active Substance: HOMEOPATHICS
     Indication: SLEEP DISORDER
     Dosage: DIME SIZE GLOB OF GEL DAILY APPLIED TO WRISTS
     Route: 061
     Dates: start: 20180901, end: 20181230
  2. SOMADERM GEL (HOMEOPATHICS) [Suspect]
     Active Substance: HOMEOPATHICS
     Indication: WEIGHT CONTROL
     Dosage: DIME SIZE GLOB OF GEL DAILY APPLIED TO WRISTS
     Route: 061
     Dates: start: 20180901, end: 20181230

REACTIONS (5)
  - Product use complaint [None]
  - Manufacturing materials issue [None]
  - Drug ineffective [None]
  - Depression [None]
  - Product use issue [None]

NARRATIVE: CASE EVENT DATE: 20181230
